FAERS Safety Report 20843494 (Version 2)
Quarter: 2022Q4

REPORT INFORMATION
  Report Type: Report from Study
  Country: US (occurrence: US)
  Receive Date: 20220518
  Receipt Date: 20221104
  Transmission Date: 20230112
  Serious: Yes (Other)
  Sender: FDA-Public Use
  Company Number: US-ABBVIE-22K-163-4398104-00

PATIENT
  Age: 78 Year
  Sex: Female

DRUGS (3)
  1. RINVOQ [Suspect]
     Active Substance: UPADACITINIB
     Indication: Rheumatoid arthritis
     Route: 048
     Dates: start: 202106
  2. PFIZER-BIONTECH COVID-19 VACCINE [Concomitant]
     Active Substance: TOZINAMERAN
     Indication: COVID-19 immunisation
     Dosage: TIME INTERVAL: 1 TOTAL: PFIZER/BIONTECH
     Route: 030
  3. ELAVIL [Suspect]
     Active Substance: AMITRIPTYLINE HYDROCHLORIDE
     Indication: Product used for unknown indication
     Route: 065

REACTIONS (11)
  - Depression [Recovered/Resolved]
  - Hallucination [Unknown]
  - Atrial fibrillation [Recovered/Resolved]
  - Agitation [Unknown]
  - Infection [Unknown]
  - Diverticulitis [Recovered/Resolved]
  - Gastrointestinal oedema [Unknown]
  - Cough [Recovered/Resolved]
  - Weight increased [Unknown]
  - Pain [Recovering/Resolving]
  - Memory impairment [Unknown]

NARRATIVE: CASE EVENT DATE: 20220306
